FAERS Safety Report 6667619-9 (Version None)
Quarter: 2010Q2

REPORT INFORMATION
  Report Type: 
  Country: None (occurrence: None)
  Receive Date: 20100405
  Receipt Date: 20100330
  Transmission Date: 20101027
  Serious: Yes (Other)
  Sender: FDA-Public Use
  Company Number: CHPA2010BR05808

PATIENT
  Age: 11 Year
  Sex: Male
  Weight: 29 kg

DRUGS (7)
  1. AGASTEN (NCH) [Suspect]
     Indication: DERMATITIS ATOPIC
     Dosage: 2.5 ML, TID
     Route: 048
     Dates: start: 20080101
  2. TOFRANIL [Concomitant]
     Indication: DEPRESSION
     Dosage: 3 DF, QD
     Dates: start: 20070101
  3. FENERGAN [Concomitant]
     Indication: DERMATITIS ATOPIC
     Dosage: 1 DF, 6QD
     Route: 061
     Dates: start: 20050101
  4. ALLEGRA [Concomitant]
     Indication: DERMATITIS ATOPIC
     Dosage: 1 DF, QD
     Dates: start: 20090101
  5. DEXAMETHASONE [Concomitant]
     Indication: DERMATITIS ATOPIC
     Dosage: 1 DF, 6 OR 7 TIMES QD
     Dates: start: 20090101
  6. OMEPRAZOLE [Concomitant]
     Indication: GASTROINTESTINAL DISORDER
     Dosage: 1 DF, TID
     Route: 048
     Dates: start: 20040101
  7. MOTILIUM [Concomitant]
     Indication: REFLUX GASTRITIS
     Dosage: 1 DF, BID
     Route: 048
     Dates: start: 19990101

REACTIONS (3)
  - DEPRESSION [None]
  - DIARRHOEA [None]
  - VOMITING [None]
